FAERS Safety Report 4674090-5 (Version None)
Quarter: 2005Q2

REPORT INFORMATION
  Report Type: 
  Country: None (occurrence: None)
  Receive Date: 20050524
  Receipt Date: 20050524
  Transmission Date: 20051028
  Serious: No
  Sender: FDA-Public Use
  Company Number: None

PATIENT
  Age: 51 Year
  Sex: Female
  Weight: 72 kg

DRUGS (3)
  1. ARGATROBAN [Suspect]
     Indication: ANTICOAGULANT THERAPY
     Dosage: 8MG/HR CONTINUOUS IV (2MCG/KG/MIN)
     Route: 042
     Dates: start: 20050323, end: 20050323
  2. ARGATROBAN [Suspect]
     Indication: DEEP VEIN THROMBOSIS
     Dosage: 8MG/HR CONTINUOUS IV (2MCG/KG/MIN)
     Route: 042
     Dates: start: 20050323, end: 20050323
  3. LEPIRUDIN (REFUDIN) [Concomitant]

REACTIONS (5)
  - CHEST DISCOMFORT [None]
  - NAUSEA [None]
  - PARAESTHESIA ORAL [None]
  - SWELLING FACE [None]
  - VOMITING [None]
